FAERS Safety Report 25940456 (Version 3)
Quarter: 2025Q4

REPORT INFORMATION
  Report Type: Spontaneous
  Country: US (occurrence: US)
  Receive Date: 20251020
  Receipt Date: 20251217
  Transmission Date: 20260118
  Serious: No
  Sender: PFIZER
  Company Number: US-PFIZER INC-PV202500115322

PATIENT
  Age: 13 Year
  Sex: Female
  Weight: 60.5 kg

DRUGS (6)
  1. GENOTROPIN [Suspect]
     Active Substance: SOMATROPIN
     Indication: Hypopituitarism
     Dosage: 2.8 MG, 1X/DAY, 6 DAYS PER WEEK
     Route: 058
     Dates: start: 20250730
  2. GENOTROPIN [Suspect]
     Active Substance: SOMATROPIN
     Indication: Germ cell cancer
  3. LEVOTHYROXINE [Concomitant]
     Active Substance: LEVOTHYROXINE
     Indication: Hypothyroidism
     Dosage: 62.5  UG, DAILY
     Route: 048
  4. CORTEF [Concomitant]
     Active Substance: HYDROCORTISONE
     Indication: Adrenal insufficiency
     Dosage: AS NEEDED FOR ADDITIONAL STRESS DOSING
     Dates: start: 20250326
  5. CORTEF [Concomitant]
     Active Substance: HYDROCORTISONE
     Dosage: TAKE 1 TAB (5 MG) IN THE MORNING, AFTERNOON, AND EVENING
     Route: 048
     Dates: start: 20250903
  6. SOLU-CORTEF [Concomitant]
     Active Substance: HYDROCORTISONE SODIUM SUCCINATE
     Dosage: (100 MG) (MEDICAL EMERGENCY) DISPENSE ONE FOR HOME AND ONE FOR CHILDCARE/SCHOOL
     Route: 030
     Dates: start: 20250916

REACTIONS (4)
  - Injection site pain [Unknown]
  - Injection site bruising [Unknown]
  - Injection site haemorrhage [Unknown]
  - Wrong technique in device usage process [Unknown]
